FAERS Safety Report 9411594 (Version 2)
Quarter: 2013Q4

REPORT INFORMATION
  Report Type: Spontaneous
  Country: US (occurrence: US)
  Receive Date: 20130722
  Receipt Date: 20131016
  Transmission Date: 20140711
  Serious: Yes (Hospitalization)
  Sender: FDA-Public Use
  Company Number: US-ROCHE-1251268

PATIENT
  Sex: Female

DRUGS (5)
  1. XELODA [Suspect]
     Indication: OESOPHAGEAL CARCINOMA
     Dosage: 14 DAYS ON; 7 DAYS OFF?2 TABS MORNING, 1 TAB EVENING 14 DAYS ON 7DAYS OFF
     Route: 048
     Dates: start: 20130522
  2. AMLODIPINE [Concomitant]
     Route: 065
  3. PREVACID [Concomitant]
     Route: 065
  4. DOXAZOSIN [Concomitant]
     Route: 065
  5. CARVEDILOL [Concomitant]

REACTIONS (3)
  - Palmar-plantar erythrodysaesthesia syndrome [Unknown]
  - Ulcer haemorrhage [Unknown]
  - Diarrhoea [Unknown]
